FAERS Safety Report 5445970-8 (Version None)
Quarter: 2007Q3

REPORT INFORMATION
  Report Type: 
  Country: None (occurrence: None)
  Receive Date: 20070907
  Receipt Date: 20070828
  Transmission Date: 20080115
  Serious: Yes (Other)
  Sender: FDA-Public Use
  Company Number: US-JNJFOC-20070803840

PATIENT
  Sex: Female
  Weight: 56.7 kg

DRUGS (7)
  1. FENTANYL TRANSDERMAL SYSTEM [Suspect]
     Indication: PAIN
     Route: 062
  2. NEURONTIN [Concomitant]
     Indication: NEURALGIA
     Route: 048
  3. CLORAZEPATE [Concomitant]
     Indication: ANXIETY
     Route: 048
  4. ADDERALL [Concomitant]
     Indication: SLEEP DISORDER
     Route: 048
  5. ADDERALL [Concomitant]
     Indication: ANXIETY
     Route: 048
  6. AMITRIPTYLINE HCL [Concomitant]
     Indication: ANXIETY
     Route: 048
  7. AMITRIPTYLINE HCL [Concomitant]
     Indication: SLEEP DISORDER
     Route: 048

REACTIONS (3)
  - DRUG WITHDRAWAL SYNDROME [None]
  - INAPPROPRIATE SCHEDULE OF DRUG ADMINISTRATION [None]
  - SENSORY DISTURBANCE [None]
